FAERS Safety Report 4462306-X (Version None)
Quarter: 2004Q3

REPORT INFORMATION
  Report Type: 
  Country: None (occurrence: None)
  Receive Date: 20040924
  Receipt Date: 20040910
  Transmission Date: 20050211
  Serious: Yes (Other)
  Sender: FDA-Public Use
  Company Number: 2004-BP-07965BP

PATIENT
  Age: 14 Month
  Sex: Male

DRUGS (1)
  1. MIRAPEX [Suspect]
     Dosage: SEE TEXT (1 MG, 3 TABLETS ONCE), PO
     Route: 048
     Dates: start: 20040908, end: 20040908

REACTIONS (3)
  - ACCIDENTAL EXPOSURE [None]
  - SOMNOLENCE [None]
  - VOMITING [None]
